FAERS Safety Report 20570297 (Version 6)
Quarter: 2024Q2

REPORT INFORMATION
  Report Type: Spontaneous
  Country: US (occurrence: US)
  Receive Date: 20220309
  Receipt Date: 20240625
  Transmission Date: 20240716
  Serious: Yes (Disabling, Other)
  Sender: FDA-Public Use
  Company Number: US-ORGANON-O2203USA000808

PATIENT
  Sex: Female

DRUGS (3)
  1. SINGULAIR [Suspect]
     Active Substance: MONTELUKAST SODIUM
     Indication: Asthma
     Dosage: TAKE 5 MG BY MOUTH NIGHTY
     Route: 048
     Dates: start: 2007, end: 20230602
  2. ADVAIR HFA [Concomitant]
     Active Substance: FLUTICASONE PROPIONATE\SALMETEROL XINAFOATE
     Dosage: 100-50 MCG/DOSE, Q12H
     Dates: start: 20131220, end: 20230602
  3. NASONEX [Concomitant]
     Active Substance: MOMETASONE FUROATE
     Dosage: UNK
     Route: 045
     Dates: start: 20131220, end: 20230602

REACTIONS (10)
  - Neuropsychological symptoms [Not Recovered/Not Resolved]
  - Anxiety [Not Recovered/Not Resolved]
  - Depression [Not Recovered/Not Resolved]
  - Aggression [Not Recovered/Not Resolved]
  - Attention deficit hyperactivity disorder [Not Recovered/Not Resolved]
  - Major depression [Unknown]
  - Panic attack [Unknown]
  - Persistent depressive disorder [Unknown]
  - Insomnia [Recovering/Resolving]
  - Generalised anxiety disorder [Unknown]

NARRATIVE: CASE EVENT DATE: 20100101
